FAERS Safety Report 22112642 (Version 1)
Quarter: 2023Q1

REPORT INFORMATION
  Report Type: Spontaneous
  Country: US (occurrence: US)
  Receive Date: 20230319
  Receipt Date: 20230319
  Transmission Date: 20230418
  Serious: No
  Sender: FDA-Public Use
  Company Number: US-ELI_LILLY_AND_COMPANY-US202303007003

PATIENT
  Sex: Male

DRUGS (1)
  1. HUMALOG [Suspect]
     Active Substance: INSULIN LISPRO
     Indication: Type 1 diabetes mellitus
     Dosage: 7 U, UNKNOWN, BEFORE MEALS
     Route: 065
     Dates: start: 1980

REACTIONS (2)
  - Blood glucose increased [Recovered/Resolved]
  - Drug ineffective [Unknown]
